FAERS Safety Report 18717030 (Version 5)
Quarter: 2021Q3

REPORT INFORMATION
  Report Type: Spontaneous
  Country: US (occurrence: US)
  Receive Date: 20210108
  Receipt Date: 20210811
  Transmission Date: 20211014
  Serious: Yes (Other)
  Sender: FDA-Public Use
  Company Number: US-PFIZER INC-2021010772

PATIENT
  Age: 64 Year
  Sex: Female

DRUGS (2)
  1. XELJANZ [Suspect]
     Active Substance: TOFACITINIB CITRATE
     Indication: ARTHRALGIA
     Dosage: 5 MG, DAILY
     Route: 048
     Dates: start: 2018
  2. XELJANZ [Suspect]
     Active Substance: TOFACITINIB CITRATE
     Indication: RHEUMATOID ARTHRITIS
     Dosage: 5 MG, 2X/DAY
     Route: 048
     Dates: start: 2018

REACTIONS (15)
  - Upper respiratory tract infection [Not Recovered/Not Resolved]
  - Inflammation [Unknown]
  - Osteoarthritis [Unknown]
  - Dysphonia [Unknown]
  - Burning sensation [Unknown]
  - Lower respiratory tract congestion [Unknown]
  - Ulcer [Unknown]
  - Malaise [Unknown]
  - Herpes zoster [Unknown]
  - Oropharyngeal pain [Unknown]
  - Fatigue [Unknown]
  - Asthma [Not Recovered/Not Resolved]
  - Cough [Unknown]
  - Pain [Unknown]
  - Swelling [Unknown]

NARRATIVE: CASE EVENT DATE: 2020
